FAERS Safety Report 4350668-3 (Version None)
Quarter: 2004Q2

REPORT INFORMATION
  Report Type: 
  Country: None (occurrence: None)
  Receive Date: 20040428
  Receipt Date: 20040416
  Transmission Date: 20050107
  Serious: Yes (Death)
  Sender: FDA-Public Use
  Company Number: HQWYE516219APR04

PATIENT

DRUGS (2)
  1. RAPAMUNE [Suspect]
  2. CORDARONE [Suspect]

REACTIONS (2)
  - DRUG INTERACTION [None]
  - INTERSTITIAL LUNG DISEASE [None]
